FAERS Safety Report 25799260 (Version 1)
Quarter: 2025Q3

REPORT INFORMATION
  Report Type: Spontaneous
  Country: RS (occurrence: RS)
  Receive Date: 20250913
  Receipt Date: 20250913
  Transmission Date: 20251021
  Serious: Yes (Death, Other)
  Sender: NOVARTIS
  Company Number: RS-002147023-NVSC2025RS142466

PATIENT
  Age: 53 Year
  Sex: Female

DRUGS (1)
  1. RIBOCICLIB [Suspect]
     Active Substance: RIBOCICLIB
     Indication: Product used for unknown indication
     Route: 065
     Dates: start: 202208, end: 202305

REACTIONS (4)
  - Metastases to central nervous system [Fatal]
  - Disease progression [Unknown]
  - Plasma cell myeloma refractory [Unknown]
  - Back pain [Unknown]

NARRATIVE: CASE EVENT DATE: 20220901
